FAERS Safety Report 7653206-2 (Version None)
Quarter: 2011Q3

REPORT INFORMATION
  Report Type: 
  Country: None (occurrence: None)
  Receive Date: 20110802
  Receipt Date: 20110802
  Transmission Date: 20111222
  Serious: No
  Sender: FDA-Public Use
  Company Number: None

PATIENT
  Sex: Female
  Weight: 58.0604 kg

DRUGS (1)
  1. PROLIA [Suspect]
     Indication: CYSTITIS
     Dosage: INFUSION Q6 MO JUNE - PRESENT

REACTIONS (2)
  - CYSTITIS [None]
  - DYSURIA [None]
